FAERS Safety Report 12154788 (Version 1)
Quarter: 2016Q1

REPORT INFORMATION
  Report Type: Spontaneous
  Country: US (occurrence: None)
  Receive Date: 20160304
  Receipt Date: 20160304
  Transmission Date: 20160526
  Serious: Yes (Death)
  Sender: FDA-Public Use
  Company Number: None

PATIENT
  Age: 40 Year
  Sex: Male
  Weight: 151.96 kg

DRUGS (5)
  1. LITHIUM CARBONATE, 600 MG UNKNOWN [Suspect]
     Active Substance: LITHIUM CARBONATE
     Indication: SCHIZOPHRENIA
     Dosage: 600 MG NIGHTLY PO
     Route: 048
     Dates: start: 20111205, end: 20160211
  2. ARIPIPRAZOLE, 30 MG OTSUKA AMERICA PHARMACEUTICAL, INC. [Suspect]
     Active Substance: ARIPIPRAZOLE
     Indication: SCHIZOPHRENIA
     Route: 048
     Dates: start: 20130809, end: 20160211
  3. METOPROLOL. [Concomitant]
     Active Substance: METOPROLOL
  4. FENOFIBRATE. [Concomitant]
     Active Substance: FENOFIBRATE
  5. OMEGA-3 ACID ETHYL ESTERS [Concomitant]
     Active Substance: OMEGA-3-ACID ETHYL ESTERS

REACTIONS (2)
  - Drug level decreased [None]
  - Refusal of treatment by patient [None]

NARRATIVE: CASE EVENT DATE: 20160211
